FAERS Safety Report 4607106-2 (Version None)
Quarter: 2005Q1

REPORT INFORMATION
  Report Type: 
  Country: None (occurrence: None)
  Receive Date: 20050310
  Receipt Date: 20050223
  Transmission Date: 20050727
  Serious: Yes (Other)
  Sender: FDA-Public Use
  Company Number: 200510358BWH

PATIENT
  Sex: Male

DRUGS (1)
  1. CIPRO XR [Suspect]
     Indication: BIOPSY PROSTATE
     Dosage: ORAL
     Route: 048

REACTIONS (4)
  - DRUG INEFFECTIVE [None]
  - OFF LABEL USE [None]
  - POST PROCEDURAL COMPLICATION [None]
  - SEPSIS [None]
